FAERS Safety Report 8262388-3 (Version None)
Quarter: 2012Q2

REPORT INFORMATION
  Report Type: 
  Country: None (occurrence: None)
  Receive Date: 20120405
  Receipt Date: 20120327
  Transmission Date: 20120825
  Serious: Yes (Other)
  Sender: FDA-Public Use
  Company Number: US-ASTRAZENECA-2011SE66690

PATIENT
  Age: 52 Year
  Sex: Male

DRUGS (20)
  1. LAFUTIDINE [Concomitant]
  2. ALBUTEROL [Concomitant]
     Dosage: 2 PUFFS AND 40 PRN
  3. SINGULAIR [Concomitant]
  4. CYCLOBENZAPRINE HCL [Concomitant]
  5. DEXASONE [Concomitant]
  6. CELEBREX [Concomitant]
  7. SYMBICORT [Suspect]
     Route: 055
  8. HYDROCHLOROTHIAZIDE [Concomitant]
  9. LIPITOR [Concomitant]
  10. LISINOPRIL [Suspect]
     Route: 048
  11. TOPROL-XL [Suspect]
     Route: 048
  12. DOXEPIN HCL [Concomitant]
  13. ZOCOR [Concomitant]
  14. ACXNPRIL [Concomitant]
  15. COMBIVENT [Concomitant]
  16. CLONIDINE [Concomitant]
  17. COLACE [Concomitant]
     Route: 048
  18. ZYRTEC [Concomitant]
  19. CARDURA [Concomitant]
     Route: 048
  20. CYCLOBENZAPRINE HCL [Concomitant]

REACTIONS (26)
  - ARTHRALGIA [None]
  - ACCELERATED HYPERTENSION [None]
  - DRY SKIN [None]
  - OEDEMA [None]
  - PRURITUS [None]
  - NAUSEA [None]
  - INFLUENZA [None]
  - GASTROOESOPHAGEAL REFLUX DISEASE [None]
  - MUSCLE SPASMS [None]
  - HYPOTENSION [None]
  - VISION BLURRED [None]
  - OROPHARYNGEAL PAIN [None]
  - FATIGUE [None]
  - OEDEMA PERIPHERAL [None]
  - DRY MOUTH [None]
  - GASTROINTESTINAL DISORDER [None]
  - RECTAL HAEMORRHAGE [None]
  - MUSCULOSKELETAL DISCOMFORT [None]
  - ORTHOPNOEA [None]
  - WHEEZING [None]
  - SYNCOPE [None]
  - MALAISE [None]
  - BACK PAIN [None]
  - CONSTIPATION [None]
  - COUGH [None]
  - ANXIETY [None]
